FAERS Safety Report 13007978 (Version 4)
Quarter: 2017Q2

REPORT INFORMATION
  Report Type: Spontaneous
  Country: JP (occurrence: JP)
  Receive Date: 20161208
  Receipt Date: 20170620
  Transmission Date: 20170830
  Serious: Yes (Death, Life-Threatening, Other)
  Sender: FDA-Public Use
  Company Number: JP-AMGEN-JPNSP2016173469

PATIENT
  Age: 80 Year
  Sex: Male
  Weight: 63 kg

DRUGS (16)
  1. JEVTANA [Suspect]
     Active Substance: CABAZITAXEL
     Indication: PROSTATE CANCER
     Dosage: ONCE EVERY FEW WEEKS
     Route: 041
     Dates: start: 20160524
  2. JEVTANA [Suspect]
     Active Substance: CABAZITAXEL
     Dosage: 30 MG, UNK
     Route: 041
     Dates: start: 20161206
  3. DEXART [Concomitant]
     Active Substance: DEXAMETHASONE SODIUM PHOSPHATE
     Dosage: 6.6 MG, UNK
     Route: 065
     Dates: start: 20161208
  4. FILGRASTIM RECOMBINANT [Concomitant]
     Dosage: 75 MUG, UNK
     Route: 058
     Dates: start: 20161213
  5. NOREPINEPHRINE. [Concomitant]
     Active Substance: NOREPINEPHRINE
     Dosage: UNK
     Route: 065
     Dates: start: 20161213
  6. CEFEPIME HYDROCHLORIDE. [Concomitant]
     Active Substance: CEFEPIME HYDROCHLORIDE
     Dosage: 1 G, BID
     Route: 041
     Dates: start: 20161213
  7. THROMBOMODULIN ALFA RECOMBINANT [Concomitant]
     Active Substance: THROMBOMODULIN ALFA
     Dosage: 8960 IU, UNK
     Route: 041
     Dates: start: 20161214
  8. INOVAN                             /00360702/ [Concomitant]
     Dosage: UNK
     Route: 042
     Dates: start: 20161213
  9. G-LASTA [Suspect]
     Active Substance: PEGFILGRASTIM
     Indication: PRODUCT USED FOR UNKNOWN INDICATION
     Dosage: 3.6 MG, UNK
     Route: 058
     Dates: start: 20161208
  10. GRANISETRON [Concomitant]
     Active Substance: GRANISETRON
     Dosage: 3 MUG, UNK
     Route: 041
     Dates: start: 20161208
  11. GLUCOSE [Concomitant]
     Active Substance: DEXTROSE
     Indication: DRUG THERAPY
     Dosage: UNK
     Route: 041
     Dates: start: 20161118, end: 20161202
  12. TRAMCET [Concomitant]
     Active Substance: ACETAMINOPHEN\TRAMADOL
     Dosage: UNK
     Route: 048
  13. CALONAL [Concomitant]
     Active Substance: ACETAMINOPHEN
     Dosage: UNK
     Route: 048
  14. RANITIDINE. [Concomitant]
     Active Substance: RANITIDINE
     Dosage: 50 MG, UNK
     Route: 065
     Dates: start: 20161208
  15. HUMULIN R [Concomitant]
     Active Substance: INSULIN HUMAN
     Indication: DRUG THERAPY
     Dosage: UNK
     Route: 041
     Dates: start: 20161118, end: 20161202
  16. ADONA                              /00056903/ [Concomitant]
     Active Substance: CARBAZOCHROME SODIUM SULFONATE
     Dosage: 100 MG, UNK
     Route: 065
     Dates: start: 20161208, end: 20161211

REACTIONS (5)
  - Colony stimulating factor therapy [Unknown]
  - Sepsis [Fatal]
  - Renal failure [Unknown]
  - Cardio-respiratory arrest [Fatal]
  - Bone marrow failure [Fatal]

NARRATIVE: CASE EVENT DATE: 20161213
